FAERS Safety Report 8922019 (Version 1)
Quarter: 2012Q4

REPORT INFORMATION
  Report Type: Spontaneous
  Country: US (occurrence: None)
  Receive Date: 20121120
  Receipt Date: 20121120
  Transmission Date: 20130627
  Serious: Yes (Other)
  Sender: FDA-Public Use
  Company Number: None

PATIENT
  Sex: Female
  Weight: 79.7 kg

DRUGS (1)
  1. TRADJENTA [Suspect]
     Indication: DIABETES
     Dosage: 5 mg daily po
     Route: 048
     Dates: start: 20121101, end: 20121115

REACTIONS (1)
  - Cerebrovascular accident [None]
